FAERS Safety Report 20664739 (Version 3)
Quarter: 2022Q2

REPORT INFORMATION
  Report Type: Report from Study
  Country: CA (occurrence: CA)
  Receive Date: 20220401
  Receipt Date: 20220511
  Transmission Date: 20220721
  Serious: Yes (Hospitalization)
  Sender: FDA-Public Use
  Company Number: CA-MYLANLABS-2022M1022798

PATIENT
  Age: 2 Year
  Sex: Male
  Weight: 13.61 kg

DRUGS (2)
  1. EPIPEN JR [Suspect]
     Active Substance: EPINEPHRINE
     Indication: Hypersensitivity
     Dosage: UNK
     Route: 030
     Dates: start: 20220106, end: 20220106
  2. EPIPEN JR [Suspect]
     Active Substance: EPINEPHRINE
     Indication: Urticaria

REACTIONS (4)
  - Device failure [Unknown]
  - Injury associated with device [Unknown]
  - Scar [Unknown]
  - Expired product administered [Unknown]

NARRATIVE: CASE EVENT DATE: 20220106
